FAERS Safety Report 10146345 (Version 1)
Quarter: 2014Q2

REPORT INFORMATION
  Report Type: Spontaneous
  Country: GB (occurrence: None)
  Receive Date: 20140429
  Receipt Date: 20140429
  Transmission Date: 20141212
  Serious: Yes (Hospitalization)
  Sender: FDA-Public Use
  Company Number: 2278751

PATIENT
  Age: 15 Year
  Sex: Female
  Weight: 66 kg

DRUGS (5)
  1. GENTAMICIN SULFATE [Suspect]
     Indication: ACUTE PROMYELOCYTIC LEUKAEMIA
  2. VORICONAZOLE [Suspect]
     Indication: ACUTE PROMYELOCYTIC LEUKAEMIA
  3. TRETINOIN [Suspect]
     Route: 048
  4. PIPERACILLIN SODIUM/ TAZOBACTAM SODIUM [Suspect]
     Indication: RENAL FAILURE
  5. ONDANSETRON HYDROCHLORIDE DIHYDRATE [Suspect]
     Indication: RENAL FAILURE

REACTIONS (1)
  - Renal failure [None]
